FAERS Safety Report 7326941-3 (Version None)
Quarter: 2011Q1

REPORT INFORMATION
  Report Type: 
  Country: None (occurrence: None)
  Receive Date: 20110302
  Receipt Date: 20100422
  Transmission Date: 20110831
  Serious: Yes (Death, Hospitalization, Other)
  Sender: FDA-Public Use
  Company Number: US-PFIZER INC-2009314332

PATIENT
  Sex: Male

DRUGS (5)
  1. DILANTIN-125 [Suspect]
     Indication: CONVULSION
     Dosage: 100 MG, 3X/DAY
     Route: 048
     Dates: start: 20030128
  2. XANAX [Concomitant]
     Indication: ANXIETY
     Dosage: 0.5 MG, AS NEEDED
  3. ZANTAC [Concomitant]
     Dosage: 150 MG, 2X/DAY
  4. VICODIN [Concomitant]
     Indication: PAIN
     Dosage: UNK
  5. DILANTIN-125 [Suspect]
     Dosage: 100 MG, 2X/DAY
     Dates: end: 20030215

REACTIONS (1)
  - STEVENS-JOHNSON SYNDROME [None]
